FAERS Safety Report 20664300 (Version 2)
Quarter: 2022Q4

REPORT INFORMATION
  Report Type: Spontaneous
  Country: BR (occurrence: BR)
  Receive Date: 20220401
  Receipt Date: 20221118
  Transmission Date: 20230113
  Serious: Yes (Other)
  Sender: FDA-Public Use
  Company Number: BR-SA-SAC20220311000851

PATIENT

DRUGS (1)
  1. LARONIDASE [Suspect]
     Active Substance: LARONIDASE
     Indication: Mucopolysaccharidosis I
     Dosage: 8 DF, QOW
     Route: 042
     Dates: start: 20121130

REACTIONS (9)
  - Cardio-respiratory arrest [Recovering/Resolving]
  - Seizure [Recovering/Resolving]
  - Gait inability [Recovering/Resolving]
  - Speech disorder [Recovering/Resolving]
  - Limb discomfort [Recovering/Resolving]
  - Bone disorder [Recovering/Resolving]
  - Weight decreased [Recovering/Resolving]
  - Vomiting [Not Recovered/Not Resolved]
  - Inappropriate schedule of product administration [Unknown]

NARRATIVE: CASE EVENT DATE: 20121130
